FAERS Safety Report 17483241 (Version 2)
Quarter: 2020Q1

REPORT INFORMATION
  Report Type: Spontaneous
  Country: JP (occurrence: JP)
  Receive Date: 20200302
  Receipt Date: 20200310
  Transmission Date: 20200409
  Serious: Yes (Hospitalization)
  Sender: FDA-Public Use
  Company Number: JP-ASTRAZENECA-2020SE25521

PATIENT
  Age: 75 Year
  Sex: Female

DRUGS (2)
  1. TAGRISSO [Suspect]
     Active Substance: OSIMERTINIB
     Indication: NON-SMALL CELL LUNG CANCER
     Route: 048
     Dates: start: 20191119, end: 20200130
  2. NIFEDIPINE. [Concomitant]
     Active Substance: NIFEDIPINE
     Indication: HYPERTENSION
     Dosage: DOSE UNKNOWN
     Route: 065

REACTIONS (2)
  - Restlessness [Not Recovered/Not Resolved]
  - Frontotemporal dementia [Unknown]

NARRATIVE: CASE EVENT DATE: 20191209
